FAERS Safety Report 4879407-4 (Version None)
Quarter: 2006Q1

REPORT INFORMATION
  Report Type: 
  Country: None (occurrence: None)
  Receive Date: 20060112
  Receipt Date: 20060105
  Transmission Date: 20060701
  Serious: Yes (Hospitalization, Disabling)
  Sender: FDA-Public Use
  Company Number: US-MERCK-0601USA00874

PATIENT
  Age: 77 Year
  Sex: Female
  Weight: 64 kg

DRUGS (1)
  1. VIOXX [Suspect]
     Indication: THROMBOSIS
     Route: 048
     Dates: start: 20030101, end: 20040930

REACTIONS (4)
  - DEEP VEIN THROMBOSIS [None]
  - HIP FRACTURE [None]
  - OEDEMA PERIPHERAL [None]
  - THROMBOSIS [None]
